FAERS Safety Report 6911741-6 (Version None)
Quarter: 2010Q3

REPORT INFORMATION
  Report Type: 
  Country: None (occurrence: None)
  Receive Date: 20100806
  Receipt Date: 20100730
  Transmission Date: 20110219
  Serious: Yes (Hospitalization)
  Sender: FDA-Public Use
  Company Number: PHHO2010TW10616

PATIENT
  Sex: Male
  Weight: 73.3 kg

DRUGS (2)
  1. PLACEBO COMP-PLA+ [Suspect]
     Indication: PANCREATIC NEUROENDOCRINE TUMOUR
     Dosage: PLACEBO
     Route: 048
     Dates: start: 20090316, end: 20100613
  2. RAD001C [Suspect]
     Indication: PANCREATIC NEUROENDOCRINE TUMOUR
     Dosage: 10 MG DAILY
     Route: 048
     Dates: start: 20100614, end: 20100712

REACTIONS (11)
  - AGITATION [None]
  - ALTERED STATE OF CONSCIOUSNESS [None]
  - AMMONIA INCREASED [None]
  - BLOOD BILIRUBIN INCREASED [None]
  - FALL [None]
  - HEPATIC ENCEPHALOPATHY [None]
  - LUNG INFILTRATION [None]
  - PNEUMONIA [None]
  - PYREXIA [None]
  - STAPHYLOCOCCUS TEST POSITIVE [None]
  - TREMOR [None]
